FAERS Safety Report 12539154 (Version 1)
Quarter: 2016Q3

REPORT INFORMATION
  Report Type: Spontaneous
  Country: US (occurrence: None)
  Receive Date: 20160707
  Receipt Date: 20160707
  Transmission Date: 20161109
  Serious: Yes (Hospitalization)
  Sender: FDA-Public Use
  Company Number: None

PATIENT
  Age: 75 Year
  Sex: Female
  Weight: 57.9 kg

DRUGS (1)
  1. IPILIMUMAB (BMS-734016;MDX-010 TRANSFECTOMADERIVED) [Suspect]
     Active Substance: IPILIMUMAB
     Dates: end: 20160615

REACTIONS (3)
  - Nausea [None]
  - Diarrhoea [None]
  - Vomiting [None]

NARRATIVE: CASE EVENT DATE: 20160625
